FAERS Safety Report 6041816-8 (Version None)
Quarter: 2009Q1

REPORT INFORMATION
  Report Type: 
  Country: None (occurrence: None)
  Receive Date: 20090116
  Receipt Date: 20090108
  Transmission Date: 20090719
  Serious: Yes (Other)
  Sender: FDA-Public Use
  Company Number: GB-TEVA-183704ISR

PATIENT
  Age: 87 Year
  Sex: Female

DRUGS (1)
  1. CLARITHROMYCIN [Suspect]
     Indication: PNEUMONIA
     Route: 048
     Dates: start: 20081209, end: 20081211

REACTIONS (2)
  - BONE MARROW FAILURE [None]
  - PANCYTOPENIA [None]
